FAERS Safety Report 6178177-X (Version None)
Quarter: 2009Q2

REPORT INFORMATION
  Report Type: 
  Country: None (occurrence: None)
  Receive Date: 20090504
  Receipt Date: 20090423
  Transmission Date: 20091009
  Serious: Yes (Other)
  Sender: FDA-Public Use
  Company Number: PHHY2009GB11288

PATIENT
  Sex: Male
  Weight: 138.6 kg

DRUGS (22)
  1. CLOZARIL [Suspect]
     Indication: SCHIZOPHRENIA
     Dosage: 125MG AM AND 250MG NOCTE
     Route: 048
     Dates: start: 20010409
  2. CLOZARIL [Suspect]
     Dosage: 100MG MANE, 200M NOCTE
     Dates: start: 20040920
  3. CLOZARIL [Suspect]
     Dosage: 125MG AM AND 250MG  AT 6 PM
  4. EPILIM CHRONO [Concomitant]
     Dosage: 1200MG NOCTE
     Dates: start: 20040920
  5. EPILIM CHRONO [Concomitant]
     Dosage: 400MG AM AND 600MG PM
     Dates: start: 20080716
  6. OMEPRAZOLE [Concomitant]
     Indication: DYSPEPSIA
     Dosage: 20 MG, QD
     Route: 048
     Dates: start: 20080716
  7. SODIUM PICOSULFATE [Concomitant]
     Dosage: 10ML NOCTE
     Dates: start: 20040920
  8. SODIUM PICOSULFATE [Concomitant]
     Dosage: 10 MG, QD
     Route: 048
     Dates: start: 20081016
  9. SENOKOT [Concomitant]
     Dosage: 2 TAB NOCTE
     Dates: start: 20040920
  10. SENOKOT [Concomitant]
     Dosage: 2 DF, QD
     Dates: start: 20080716
  11. BUMETANIDE [Concomitant]
     Dosage: 1 MG, QD
     Route: 048
     Dates: start: 20081107
  12. LEVOTHYROXINE SODIUM [Concomitant]
     Indication: HYPOTHYROIDISM
     Dosage: 100 UG, QD
     Dates: start: 20040920
  13. LEVOTHYROXINE SODIUM [Concomitant]
     Dosage: 150 UG, UNK
     Route: 048
     Dates: start: 20081223
  14. MEDICATED SHAMPOOS (DERMEX) [Concomitant]
     Dosage: UNK
     Dates: start: 20090324
  15. OILATUM PLUS [Concomitant]
     Indication: ECZEMA
     Dosage: 1-2 CAPFULS IN BATH WATER
     Dates: start: 20081016
  16. PARACETAMOL [Concomitant]
     Indication: PAIN
     Dosage: 1-2 X 500MG TABLETS UP TO 4 TIMES DAILY (MAXIMUM TOTAL 4GM PER 24 HOURS)
     Dates: start: 20081016
  17. OXYGEN [Concomitant]
     Indication: DYSPNOEA
     Dosage: 2-4 LITRES WITH MASK FOR 20 MINUTES
     Dates: start: 20081016
  18. OXYGEN [Concomitant]
     Indication: OXYGEN SATURATION DECREASED
  19. UVISTAT CREAM [Concomitant]
     Indication: SUNBURN
     Dosage: UNK
     Route: 061
     Dates: start: 20090317
  20. TRIMOVATE [Concomitant]
     Dosage: UNK
     Route: 061
     Dates: start: 20090323
  21. HYOSCINE HBR HYT [Concomitant]
     Dosage: 300 UG, TID
     Dates: start: 20040920
  22. ATORVASTATIN [Concomitant]

REACTIONS (30)
  - ABNORMAL BEHAVIOUR [None]
  - ASTHMA [None]
  - ATONIC SEIZURES [None]
  - BLOOD CHOLESTEROL INCREASED [None]
  - BLOOD GLUCOSE INCREASED [None]
  - BLOOD TRIGLYCERIDES INCREASED [None]
  - CENTRAL NERVOUS SYSTEM LESION [None]
  - COMPULSIVE SEXUAL BEHAVIOUR [None]
  - CONSTIPATION [None]
  - FAECES DISCOLOURED [None]
  - FEMUR FRACTURE [None]
  - GASTROINTESTINAL HAEMORRHAGE [None]
  - HAEMATOCRIT DECREASED [None]
  - HAEMOGLOBIN DECREASED [None]
  - HYPOCALCAEMIA [None]
  - IRON DEFICIENCY [None]
  - LETHARGY [None]
  - LIBIDO INCREASED [None]
  - MEAN CELL HAEMOGLOBIN DECREASED [None]
  - MEAN CELL VOLUME DECREASED [None]
  - MELAENA [None]
  - MICROCYTOSIS [None]
  - MILD MENTAL RETARDATION [None]
  - MYOCLONUS [None]
  - OCCULT BLOOD POSITIVE [None]
  - PLATELET COUNT DECREASED [None]
  - SEBORRHOEIC DERMATITIS [None]
  - SURGERY [None]
  - TACHYCARDIA [None]
  - WEIGHT INCREASED [None]
